FAERS Safety Report 9459554 (Version 1)
Quarter: 2013Q3

REPORT INFORMATION
  Report Type: Spontaneous
  Country: US (occurrence: US)
  Receive Date: 20130815
  Receipt Date: 20130815
  Transmission Date: 20140515
  Serious: No
  Sender: FDA-Public Use
  Company Number: US-PFIZER INC-2013233073

PATIENT
  Age: 60 Year
  Sex: Female
  Weight: 56.69 kg

DRUGS (3)
  1. LATANOPROST [Suspect]
     Indication: INTRAOCULAR PRESSURE INCREASED
     Dosage: 1 DROP IN EACH EYE DAILY
     Route: 047
     Dates: start: 20130708
  2. ESTRADIOL [Concomitant]
     Dosage: 0.5 MG, DAILY
  3. SIMVASTATIN [Concomitant]
     Dosage: 10 MG, DAILY

REACTIONS (1)
  - Drug ineffective [Unknown]
